FAERS Safety Report 25335801 (Version 1)
Quarter: 2025Q2

REPORT INFORMATION
  Report Type: Spontaneous
  Country: US (occurrence: US)
  Receive Date: 20250520
  Receipt Date: 20250520
  Transmission Date: 20250717
  Serious: No
  Sender: ELI LILLY AND COMPANY
  Company Number: US-ELI_LILLY_AND_COMPANY-US202505015804

PATIENT
  Age: 64 Year
  Sex: Female

DRUGS (2)
  1. TRULICITY [Suspect]
     Active Substance: DULAGLUTIDE
     Indication: Product used for unknown indication
     Dosage: UNK UNK, WEEKLY (1/W)
     Route: 065
     Dates: start: 2020
  2. TRULICITY [Suspect]
     Active Substance: DULAGLUTIDE
     Dosage: 3 MG, WEEKLY (1/W)
     Route: 065

REACTIONS (2)
  - Product dose omission issue [Unknown]
  - Feeling abnormal [Unknown]
